FAERS Safety Report 25653416 (Version 2)
Quarter: 2025Q3

REPORT INFORMATION
  Report Type: Spontaneous
  Country: EU (occurrence: EU)
  Receive Date: 20250807
  Receipt Date: 20250822
  Transmission Date: 20251020
  Serious: Yes (Hospitalization)
  Sender: CHIESI
  Company Number: EU-CHIESI-2025CHF05394

PATIENT
  Sex: Female

DRUGS (1)
  1. METRELEPTIN [Suspect]
     Active Substance: METRELEPTIN
     Indication: Congenital generalised lipodystrophy
     Dosage: 5 MILLIGRAM, QD
     Route: 058
     Dates: start: 20250721

REACTIONS (1)
  - Diabetic foot [Recovering/Resolving]

NARRATIVE: CASE EVENT DATE: 20250722
